FAERS Safety Report 5074614-2 (Version None)
Quarter: 2006Q3

REPORT INFORMATION
  Report Type: 
  Country: None (occurrence: None)
  Receive Date: 20060808
  Receipt Date: 20050301
  Transmission Date: 20061208
  Serious: No
  Sender: FDA-Public Use
  Company Number: US-AMGEN-KDL118932

PATIENT
  Age: 80 Year
  Sex: Female

DRUGS (3)
  1. PROCRIT [Suspect]
     Indication: ANAEMIA
     Route: 058
     Dates: start: 20050101
  2. ANTIDEPRESSANTS [Concomitant]
  3. NORVASC [Concomitant]

REACTIONS (10)
  - BALANCE DISORDER [None]
  - CONDITION AGGRAVATED [None]
  - DEPRESSION [None]
  - EYE DISORDER [None]
  - FEELING ABNORMAL [None]
  - GAIT DISTURBANCE [None]
  - INSOMNIA [None]
  - MUSCULAR WEAKNESS [None]
  - OCULAR HYPERAEMIA [None]
  - PRURITUS [None]
